FAERS Safety Report 5911372-0 (Version None)
Quarter: 2008Q4

REPORT INFORMATION
  Report Type: 
  Country: None (occurrence: None)
  Receive Date: 20081007
  Receipt Date: 20080815
  Transmission Date: 20090506
  Serious: No
  Sender: FDA-Public Use
  Company Number: US-ASTRAZENECA-2008UW15063

PATIENT
  Age: 67 Year
  Sex: Female
  Weight: 63.5 kg

DRUGS (3)
  1. ARIMIDEX [Suspect]
     Indication: BREAST CANCER FEMALE
     Route: 048
  2. LIPITOR [Concomitant]
  3. LEXAPRO [Concomitant]

REACTIONS (4)
  - BONE PAIN [None]
  - HOT FLUSH [None]
  - MYALGIA [None]
  - NEUROPATHY PERIPHERAL [None]
